FAERS Safety Report 15250940 (Version 1)
Quarter: 2018Q3

REPORT INFORMATION
  Report Type: Spontaneous
  Country: FR (occurrence: FR)
  Receive Date: 20180807
  Receipt Date: 20180807
  Transmission Date: 20181010
  Serious: Yes (Life-Threatening)
  Sender: FDA-Public Use
  Company Number: FR-PFIZER INC-2018314870

PATIENT
  Age: 25 Year
  Sex: Male
  Weight: 93 kg

DRUGS (5)
  1. LORMETAZEPAM [Suspect]
     Active Substance: LORMETAZEPAM
     Dosage: 56 MG, SINGLE
     Route: 048
  2. ALPRAZOLAM. [Suspect]
     Active Substance: ALPRAZOLAM
     Dosage: 22.5 MG, SINGLE
     Route: 048
  3. COCAINE [Suspect]
     Active Substance: COCAINE
     Dosage: UNK
     Route: 042
  4. CANNABIS [Suspect]
     Active Substance: CANNABIS SATIVA SUBSP. INDICA TOP
     Dosage: UNK
  5. METHADONE [Suspect]
     Active Substance: METHADONE HYDROCHLORIDE
     Indication: DRUG WITHDRAWAL MAINTENANCE THERAPY
     Dosage: 270 MG, SINGLE
     Route: 048

REACTIONS (2)
  - Coma [Recovered/Resolved]
  - Hypoventilation [Recovered/Resolved]

NARRATIVE: CASE EVENT DATE: 20180617
